FAERS Safety Report 16424448 (Version 1)
Quarter: 2019Q2

REPORT INFORMATION
  Report Type: Spontaneous
  Country: US (occurrence: US)
  Receive Date: 20190613
  Receipt Date: 20190613
  Transmission Date: 20190711
  Serious: No
  Sender: FDA-Public Use
  Company Number: US-ACCORD-112145

PATIENT
  Sex: Male

DRUGS (2)
  1. PRAVASTATIN ACCORD [Suspect]
     Active Substance: PRAVASTATIN
     Indication: BLOOD CHOLESTEROL
     Route: 048
  2. BALSALAZIDE/BALSALAZIDE SODIUM [Concomitant]

REACTIONS (1)
  - Wrong dose [Unknown]
